FAERS Safety Report 15670912 (Version 1)
Quarter: 2018Q4

REPORT INFORMATION
  Report Type: Spontaneous
  Country: NL (occurrence: NL)
  Receive Date: 20181129
  Receipt Date: 20181129
  Transmission Date: 20190205
  Serious: No
  Sender: FDA-Public Use
  Company Number: NL-NODEN PHARMA DAC-NOD-2018-000069

PATIENT
  Age: 59 Year
  Sex: Female

DRUGS (1)
  1. RASILEZ HCT [Suspect]
     Active Substance: ALISKIREN\HYDROCHLOROTHIAZIDE
     Indication: HYPERTENSION
     Dosage: 150/12.5 MG (2 TABLETS AT THE TIME)
     Route: 065
     Dates: start: 20180321

REACTIONS (3)
  - Joint swelling [Unknown]
  - Drug ineffective [Unknown]
  - Chillblains [Unknown]
